FAERS Safety Report 7407649-2 (Version None)
Quarter: 2011Q2

REPORT INFORMATION
  Report Type: 
  Country: None (occurrence: None)
  Receive Date: 20110404
  Receipt Date: 20110324
  Transmission Date: 20111010
  Serious: Yes (Hospitalization)
  Sender: FDA-Public Use
  Company Number: 2011SP014020

PATIENT
  Age: 27 Year
  Sex: Female
  Weight: 54 kg

DRUGS (3)
  1. CELESTONE [Suspect]
     Indication: MATERNAL THERAPY TO ENHANCE FOETAL LUNG MATURITY
     Dosage: 2 ML; ONCE; IM
     Route: 030
     Dates: start: 20110323, end: 20110323
  2. ASCORBIC ACID [Concomitant]
  3. INDOMETHACIN [Concomitant]

REACTIONS (5)
  - DRUG EXPOSURE DURING PREGNANCY [None]
  - VOMITING IN PREGNANCY [None]
  - PREMATURE LABOUR [None]
  - RASH [None]
  - NAUSEA [None]
